FAERS Safety Report 9062765 (Version 2)
Quarter: 2014Q3

REPORT INFORMATION
  Report Type: Spontaneous
  Country: US (occurrence: US)
  Receive Date: 20130128
  Receipt Date: 20140922
  Transmission Date: 20150326
  Serious: Yes (Hospitalization)
  Sender: FDA-Public Use
  Company Number: US-BAYER-2013-008217

PATIENT
  Age: 26 Year
  Sex: Female
  Weight: 69.39 kg

DRUGS (11)
  1. TRAZODONE [Concomitant]
     Active Substance: TRAZODONE HYDROCHLORIDE
     Dosage: 25 MG, AS NEEDED NIGHTLY
     Route: 048
  2. SERTRALINE HYDROCHLORIDE. [Concomitant]
     Active Substance: SERTRALINE HYDROCHLORIDE
     Dosage: 50 MG, UNK
  3. TYLENOL [Concomitant]
     Active Substance: ACETAMINOPHEN
  4. OXYCODONE [Concomitant]
     Active Substance: OXYCODONE
     Indication: PAIN
  5. MOTRIN [Concomitant]
     Active Substance: IBUPROFEN
  6. ZOLOFT [Concomitant]
     Active Substance: SERTRALINE HYDROCHLORIDE
     Dosage: 50 MG, UNK
     Route: 048
  7. YAZ [Suspect]
     Active Substance: DROSPIRENONE\ETHINYL ESTRADIOL
     Indication: DYSMENORRHOEA
  8. ATIVAN [Concomitant]
     Active Substance: LORAZEPAM
     Indication: ANXIETY
     Dosage: 0.25 MG, PRN, DAILY
     Route: 048
  9. YAZ [Suspect]
     Active Substance: DROSPIRENONE\ETHINYL ESTRADIOL
     Indication: POLYCYSTIC OVARIES
  10. YASMIN [Suspect]
     Active Substance: DROSPIRENONE\ETHINYL ESTRADIOL
  11. ZOFRAN [Concomitant]
     Active Substance: ONDANSETRON HYDROCHLORIDE

REACTIONS (4)
  - Pelvic venous thrombosis [None]
  - Injury [None]
  - Deep vein thrombosis [None]
  - Pain [None]

NARRATIVE: CASE EVENT DATE: 20120908
